FAERS Safety Report 6684878-7 (Version None)
Quarter: 2010Q2

REPORT INFORMATION
  Report Type: 
  Country: None (occurrence: None)
  Receive Date: 20100416
  Receipt Date: 20100413
  Transmission Date: 20101027
  Serious: Yes (Hospitalization, Disabling, Other)
  Sender: FDA-Public Use
  Company Number: US-MERCK-1003USA01385

PATIENT
  Age: 85 Year
  Sex: Female

DRUGS (3)
  1. FOSAMAX [Suspect]
     Indication: OSTEOPOROSIS
     Route: 048
     Dates: start: 20030101, end: 20080101
  2. INSULIN [Concomitant]
     Route: 065
  3. ELAVIL [Concomitant]
     Route: 048

REACTIONS (3)
  - ARTHRALGIA [None]
  - HIP FRACTURE [None]
  - PAIN IN JAW [None]
